FAERS Safety Report 5175304-8 (Version None)
Quarter: 2006Q4

REPORT INFORMATION
  Report Type: 
  Country: None (occurrence: None)
  Receive Date: 20061211
  Receipt Date: 20061211
  Transmission Date: 20070319
  Serious: Yes (Other)
  Sender: FDA-Public Use
  Company Number: None

PATIENT
  Age: 29 Year
  Sex: Female
  Weight: 56.6996 kg

DRUGS (1)
  1. THIOTHIXENE [Suspect]
     Indication: SCHIZOAFFECTIVE DISORDER
     Dosage: 5 MG BID AND 15 MG QHS   PO
     Route: 048
     Dates: start: 20060906, end: 20061207

REACTIONS (2)
  - BLOOD PROLACTIN INCREASED [None]
  - GALACTORRHOEA [None]
